FAERS Safety Report 9161192 (Version 2)
Quarter: 2013Q3

REPORT INFORMATION
  Report Type: Spontaneous
  Country: US (occurrence: US)
  Receive Date: 20130313
  Receipt Date: 20130702
  Transmission Date: 20140515
  Serious: Yes (Other)
  Sender: FDA-Public Use
  Company Number: US-GLAXOSMITHKLINE-A1014601A

PATIENT
  Age: 75 Year
  Sex: Male

DRUGS (5)
  1. AVANDIA [Suspect]
     Indication: TYPE 2 DIABETES MELLITUS
     Dosage: 2MG PER DAY
     Route: 065
     Dates: start: 201001
  2. CRESTOR [Concomitant]
  3. METFORMIN [Concomitant]
     Dosage: 2000MG PER DAY
  4. POTASSIUM [Concomitant]
  5. BUMETANIDE [Concomitant]

REACTIONS (3)
  - Haemorrhage [Unknown]
  - Myocardial infarction [Unknown]
  - Anaemia [Not Recovered/Not Resolved]
